FAERS Safety Report 23783475 (Version 1)
Quarter: 2024Q2

REPORT INFORMATION
  Report Type: Spontaneous
  Country: PH (occurrence: PH)
  Receive Date: 20240425
  Receipt Date: 20240425
  Transmission Date: 20240717
  Serious: Yes (Death, Other)
  Sender: FDA-Public Use
  Company Number: PH-GLAXOSMITHKLINE-PH2024APC052456

PATIENT

DRUGS (1)
  1. VENTOLIN [Suspect]
     Active Substance: ALBUTEROL SULFATE
     Indication: Product used for unknown indication
     Dosage: UNK

REACTIONS (1)
  - Death [Fatal]
